FAERS Safety Report 4721291-3 (Version None)
Quarter: 2005Q3

REPORT INFORMATION
  Report Type: 
  Country: None (occurrence: None)
  Receive Date: 20050721
  Receipt Date: 20040429
  Transmission Date: 20060218
  Serious: No
  Sender: FDA-Public Use
  Company Number: US-BRISTOL-MYERS SQUIBB COMPANY-12574802

PATIENT
  Age: 38 Year
  Sex: Female
  Weight: 72 kg

DRUGS (7)
  1. COUMADIN [Suspect]
     Indication: PULMONARY EMBOLISM
     Route: 048
     Dates: start: 20030603
  2. DEPAKOTE [Concomitant]
  3. ALBUTEROL [Concomitant]
  4. QVAR 40 [Concomitant]
  5. FLONASE [Concomitant]
     Dosage: 1 SPRAY TWICE DAILY
     Route: 045
  6. ZANTAC [Concomitant]
  7. ZANTAC [Concomitant]

REACTIONS (2)
  - MENORRHAGIA [None]
  - UTERINE ENLARGEMENT [None]
